FAERS Safety Report 23801092 (Version 1)
Quarter: 2024Q2

REPORT INFORMATION
  Report Type: Report from Study
  Country: DE (occurrence: DE)
  Receive Date: 20240430
  Receipt Date: 20240430
  Transmission Date: 20240715
  Serious: No
  Sender: FDA-Public Use
  Company Number: DE-WT-2024-0166

PATIENT
  Age: 30 Year
  Sex: Female
  Weight: 58 kg

DRUGS (8)
  1. ESZOPICLONE [Suspect]
     Active Substance: ESZOPICLONE
     Indication: Initial insomnia
     Route: 048
     Dates: start: 20231219, end: 20240117
  2. ESZOPICLONE [Suspect]
     Active Substance: ESZOPICLONE
     Indication: Middle insomnia
  3. ESZOPICLONE [Suspect]
     Active Substance: ESZOPICLONE
     Indication: Insomnia
  4. LORAZEPAM [Concomitant]
     Active Substance: LORAZEPAM
  5. MIRTAZAPINE [Concomitant]
     Active Substance: MIRTAZAPINE
  6. Tavor [Concomitant]
     Indication: Anxiety disorder
  7. IBUPROFEN [Concomitant]
     Active Substance: IBUPROFEN
     Indication: Arthralgia
  8. IBUPROFEN [Concomitant]
     Active Substance: IBUPROFEN
     Indication: Menstrual headache

REACTIONS (1)
  - Drug ineffective [Unknown]
